FAERS Safety Report 25338184 (Version 1)
Quarter: 2025Q2

REPORT INFORMATION
  Report Type: Spontaneous
  Country: US (occurrence: US)
  Receive Date: 20250520
  Receipt Date: 20250520
  Transmission Date: 20250716
  Serious: No
  Sender: Thea Pharma
  Company Number: US-THEA-2024001406

PATIENT
  Sex: Female

DRUGS (1)
  1. COSOPT [Suspect]
     Active Substance: DORZOLAMIDE HYDROCHLORIDE\TIMOLOL MALEATE
     Indication: Glaucoma
     Dosage: IN BOTH EYES. CONSISTENTLY, SAME TIME EACH DAY
     Route: 047

REACTIONS (3)
  - Drug ineffective [Unknown]
  - Product deposit [Unknown]
  - Product storage error [Unknown]

NARRATIVE: CASE EVENT DATE: 20070101
